FAERS Safety Report 8719832 (Version 2)
Quarter: 2013Q1

REPORT INFORMATION
  Report Type: Spontaneous
  Country: US (occurrence: US)
  Receive Date: 20120813
  Receipt Date: 20130104
  Transmission Date: 20140127
  Serious: Yes (Hospitalization)
  Sender: FDA-Public Use
  Company Number: US-BAYER-2012-079370

PATIENT
  Age: 44 Year
  Sex: Female
  Weight: 102.4 kg

DRUGS (7)
  1. YASMIN [Suspect]
     Dosage: UNK
     Dates: start: 20030509, end: 20030922
  2. IBUPROFEN [Concomitant]
     Dosage: UNK
     Dates: start: 20030602
  3. ZELNORM [Concomitant]
     Dosage: UNK
     Dates: start: 20030714
  4. HYDROCHLOROTHIAZIDE [Concomitant]
     Dosage: 25 MG, UNK
     Dates: start: 20030725, end: 20031209
  5. KLOR-CON [Concomitant]
     Dosage: UNK
     Dates: start: 20030725, end: 20031107
  6. ZITHROMAX [Concomitant]
     Dosage: UNK
     Dates: start: 20030902
  7. GUAIFENESIN [Concomitant]
     Dosage: UNK
     Dates: start: 20030902

REACTIONS (2)
  - Pulmonary embolism [None]
  - Deep vein thrombosis [Recovering/Resolving]
